FAERS Safety Report 8230424-6 (Version None)
Quarter: 2012Q1

REPORT INFORMATION
  Report Type: 
  Country: None (occurrence: None)
  Receive Date: 20120322
  Receipt Date: 20120322
  Transmission Date: 20120608
  Serious: No
  Sender: FDA-Public Use
  Company Number: None

PATIENT

DRUGS (1)
  1. HALDOL [Suspect]

REACTIONS (11)
  - AGGRESSION [None]
  - DRUG ADMINISTERED TO PATIENT OF INAPPROPRIATE AGE [None]
  - MEDICATION ERROR [None]
  - SWOLLEN TONGUE [None]
  - STUPOR [None]
  - APHAGIA [None]
  - DYSSTASIA [None]
  - DYSPHAGIA [None]
  - SPEECH DISORDER [None]
  - UNRESPONSIVE TO STIMULI [None]
  - MUSCULOSKELETAL STIFFNESS [None]
